FAERS Safety Report 7917813-1 (Version None)
Quarter: 2011Q4

REPORT INFORMATION
  Report Type: 
  Country: None (occurrence: None)
  Receive Date: 20111116
  Receipt Date: 20111101
  Transmission Date: 20120403
  Serious: Yes (Other)
  Sender: FDA-Public Use
  Company Number: PHHY2011PL099722

PATIENT

DRUGS (1)
  1. IMATINIB [Suspect]
     Indication: DERMATOFIBROSARCOMA

REACTIONS (1)
  - TOXICITY TO VARIOUS AGENTS [None]
